FAERS Safety Report 8833779 (Version 1)
Quarter: 2012Q4

REPORT INFORMATION
  Report Type: Spontaneous
  Country: BE (occurrence: None)
  Receive Date: 20121005
  Receipt Date: 20121005
  Transmission Date: 20130627
  Serious: Yes (Hospitalization, Other)
  Sender: FDA-Public Use
  Company Number: 2012P1059889

PATIENT
  Age: 61 Year
  Sex: Female

DRUGS (8)
  1. NAPROXEN [Suspect]
     Indication: ARTHRITIS
  2. ATORVASTATIN [Suspect]
  3. METFORMIN [Concomitant]
  4. LISINOPRIL AND HYDROCHLORITHIAZIDE [Concomitant]
  5. TRAMADOL [Concomitant]
  6. ALLOPURINOL [Concomitant]
  7. RANITIDINE [Concomitant]
  8. QUININE SULFATE [Concomitant]

REACTIONS (19)
  - Chest pain [None]
  - Vomiting [None]
  - Diarrhoea [None]
  - Restlessness [None]
  - Pallor [None]
  - Hypotension [None]
  - Sinus tachycardia [None]
  - Blood potassium decreased [None]
  - Livedo reticularis [None]
  - Thirst [None]
  - Renal failure acute [None]
  - Respiratory failure [None]
  - Cardiac arrest [None]
  - Hepatic failure [None]
  - Rhabdomyolysis [None]
  - Muscle necrosis [None]
  - Disseminated intravascular coagulation [None]
  - Blood uric acid increased [None]
  - Toxic epidermal necrolysis [None]
